FAERS Safety Report 23588558 (Version 1)
Quarter: 2024Q1

REPORT INFORMATION
  Report Type: Spontaneous
  Country: CA (occurrence: CA)
  Receive Date: 20240302
  Receipt Date: 20240302
  Transmission Date: 20240410
  Serious: Yes (Other)
  Sender: FDA-Public Use
  Company Number: None

PATIENT
  Age: 48 Year
  Sex: Male

DRUGS (6)
  1. BENDAMUSTINE [Suspect]
     Active Substance: BENDAMUSTINE
     Indication: Mantle cell lymphoma
     Dosage: 200.0 MG/M2, CYCLICAL
     Route: 042
  2. CYTARABINE [Suspect]
     Active Substance: CYTARABINE
     Indication: Mantle cell lymphoma
     Dosage: INTRATHECAL, 200.0 MG/M2
     Route: 042
  3. ETOPOSIDE [Suspect]
     Active Substance: ETOPOSIDE
     Indication: Mantle cell lymphoma
     Dosage: 100.0 MG/M2, CYCLICAL
     Route: 042
  4. MELPHALAN [Suspect]
     Active Substance: MELPHALAN
     Indication: Mantle cell lymphoma
     Dosage: 140.0 MG/M2, CYCLICAL
     Route: 042
  5. FUROSEMIDE [Concomitant]
     Active Substance: FUROSEMIDE
     Indication: Diuretic therapy
  6. VITAMIN D [Concomitant]
     Active Substance: VITAMIN D NOS
     Indication: Supplementation therapy

REACTIONS (2)
  - Mucosal inflammation [Unknown]
  - Odynophagia [Unknown]
